FAERS Safety Report 25915474 (Version 1)
Quarter: 2025Q4

REPORT INFORMATION
  Report Type: Report from Study
  Country: US (occurrence: US)
  Receive Date: 20251013
  Receipt Date: 20251013
  Transmission Date: 20260117
  Serious: No
  Sender: LUNDBECK
  Company Number: US-LUNDBECK-DKLU4019431

PATIENT
  Age: 41 Year
  Sex: Female
  Weight: 70.307 kg

DRUGS (2)
  1. VYEPTI [Suspect]
     Active Substance: EPTINEZUMAB-JJMR
     Indication: Migraine
     Dosage: 300 MILLIGRAM
     Route: 041
     Dates: start: 20250908
  2. OXYMETAZOLINE [Concomitant]
     Active Substance: OXYMETAZOLINE
     Indication: Product used for unknown indication

REACTIONS (5)
  - Throat irritation [Not Recovered/Not Resolved]
  - Productive cough [Unknown]
  - Lower respiratory tract congestion [Unknown]
  - Nasal congestion [Unknown]
  - Pain [Unknown]

NARRATIVE: CASE EVENT DATE: 20250908
